FAERS Safety Report 10709437 (Version 1)
Quarter: 2015Q1

REPORT INFORMATION
  Report Type: Spontaneous
  Country: US (occurrence: None)
  Receive Date: 20150113
  Receipt Date: 20150113
  Transmission Date: 20150721
  Serious: Yes (Hospitalization, Other)
  Sender: FDA-Public Use
  Company Number: None

PATIENT
  Age: 51 Year
  Sex: Female
  Weight: 99.5 kg

DRUGS (1)
  1. GADOBUTROL [Suspect]
     Active Substance: GADOBUTROL
     Indication: MIGRAINE
     Route: 042
     Dates: start: 20150109, end: 20150109

REACTIONS (2)
  - Dyspnoea [None]
  - Stridor [None]

NARRATIVE: CASE EVENT DATE: 20150109
